FAERS Safety Report 8240924-0 (Version None)
Quarter: 2012Q1

REPORT INFORMATION
  Report Type: 
  Country: None (occurrence: None)
  Receive Date: 20120328
  Receipt Date: 20120224
  Transmission Date: 20120608
  Serious: Yes (Hospitalization)
  Sender: FDA-Public Use
  Company Number: CN-ROXANE LABORATORIES, INC.-2012-EU-01137GD

PATIENT
  Age: 15 Year
  Sex: Male

DRUGS (8)
  1. PREDNISONE TAB [Suspect]
     Dosage: 7.5 MG
  2. PROTON PUMP INHIBITOR [Suspect]
  3. VITAMIN D SUPPLEMENTS [Suspect]
     Indication: VITAMIN SUPPLEMENTATION
  4. PREDNISONE TAB [Suspect]
     Indication: JUVENILE ARTHRITIS
     Dosage: 45 MG
     Dates: start: 20080701
  5. METHOTREXATE [Suspect]
     Indication: JUVENILE ARTHRITIS
     Dosage: 1.7857 MG
     Dates: start: 20080701
  6. HYDROXYCHLOROQUINE SULFATE [Suspect]
     Indication: JUVENILE ARTHRITIS
     Dosage: 200 MG
     Dates: start: 20080701
  7. CALCIUM CARBONATE [Suspect]
  8. FOLIC ACID [Suspect]

REACTIONS (7)
  - BEZOAR [None]
  - VOMITING [None]
  - PYREXIA [None]
  - ILEUS [None]
  - ABDOMINAL PAIN [None]
  - DIARRHOEA [None]
  - NAUSEA [None]
